FAERS Safety Report 4930577-9 (Version None)
Quarter: 2006Q1

REPORT INFORMATION
  Report Type: 
  Country: None (occurrence: None)
  Receive Date: 20060302
  Receipt Date: 20051207
  Transmission Date: 20060701
  Serious: Yes (Life-Threatening)
  Sender: FDA-Public Use
  Company Number: US-MERCK-0512USA01675

PATIENT
  Age: 59 Year
  Sex: Male
  Weight: 136 kg

DRUGS (3)
  1. VIOXX [Suspect]
     Indication: ARTHRITIS
     Route: 048
     Dates: start: 20040601, end: 20040701
  2. TYLENOL (CAPLET) [Concomitant]
     Route: 065
  3. ALEVE [Concomitant]
     Route: 065

REACTIONS (3)
  - CARDIAC DISORDER [None]
  - EMOTIONAL DISTRESS [None]
  - THROMBOSIS [None]
